FAERS Safety Report 9012826 (Version 2)
Quarter: 2013Q2

REPORT INFORMATION
  Report Type: Spontaneous
  Country: US (occurrence: US)
  Receive Date: 20130114
  Receipt Date: 20130614
  Transmission Date: 20140414
  Serious: No
  Sender: FDA-Public Use
  Company Number: US-009507513-1301USA004231

PATIENT
  Sex: Female

DRUGS (5)
  1. SAPHRIS [Suspect]
     Dosage: 10 MG, BID
     Route: 060
     Dates: start: 201207, end: 20121228
  2. LISINOPRIL [Concomitant]
  3. PROPRANOLOL HYDROCHLORIDE [Concomitant]
  4. VENLAFAXINE HYDROCHLORIDE [Concomitant]
  5. PRAMIPEXOLE [Concomitant]

REACTIONS (3)
  - Muscular weakness [Recovering/Resolving]
  - Fatigue [Recovering/Resolving]
  - Somnolence [Recovering/Resolving]
